FAERS Safety Report 19953129 (Version 1)
Quarter: 2021Q4

REPORT INFORMATION
  Report Type: Spontaneous
  Country: US (occurrence: US)
  Receive Date: 20211013
  Receipt Date: 20211013
  Transmission Date: 20220303
  Serious: No
  Sender: FDA-Public Use
  Company Number: US-REDHILL BIOPHARMA-2021RDH00128

PATIENT
  Age: 67 Year
  Sex: Female
  Weight: 71.1 kg

DRUGS (17)
  1. MOVANTIK [Suspect]
     Active Substance: NALOXEGOL OXALATE
  2. BUPRENORPHINE\NALOXONE [Suspect]
     Active Substance: BUPRENORPHINE\NALOXONE
     Dosage: 1 FILM, 1X/DAY
  3. BUPRENORPHINE\NALOXONE [Suspect]
     Active Substance: BUPRENORPHINE\NALOXONE
     Dosage: UNK ^CUT FILM^ TO TRY AND REDUCE
  4. OMEPRAZOLE [Suspect]
     Active Substance: OMEPRAZOLE
  5. LEXAPRO [Suspect]
     Active Substance: ESCITALOPRAM OXALATE
  6. FETZIMA [Suspect]
     Active Substance: LEVOMILNACIPRAN HYDROCHLORIDE
  7. TRAZODONE HYDROCHLORIDE [Suspect]
     Active Substance: TRAZODONE HYDROCHLORIDE
  8. LAMICTAL [Suspect]
     Active Substance: LAMOTRIGINE
  9. ENBREL [Suspect]
     Active Substance: ETANERCEPT
  10. ASPIRIN [Suspect]
     Active Substance: ASPIRIN
  11. FOLIC ACID [Suspect]
     Active Substance: FOLIC ACID
  12. COLACE [Suspect]
     Active Substance: DOCUSATE SODIUM
  13. METHOTREXATE [Suspect]
     Active Substance: METHOTREXATE
  14. GENTLE LAXATIVE [Suspect]
     Active Substance: BISACODYL
  15. CETIRIZINE HYDROCHLORIDE [Suspect]
     Active Substance: CETIRIZINE HYDROCHLORIDE
  16. ONE-A-DAY NOS [Suspect]
     Active Substance: MINERALS\VITAMINS
  17. ROPINIROLE [Concomitant]
     Active Substance: ROPINIROLE

REACTIONS (3)
  - Asthenia [None]
  - Malaise [None]
  - Hyperhidrosis [Unknown]
